FAERS Safety Report 4436191-6 (Version None)
Quarter: 2004Q3

REPORT INFORMATION
  Report Type: 
  Country: None (occurrence: None)
  Receive Date: 20040830
  Receipt Date: 20040512
  Transmission Date: 20050211
  Serious: Yes (Other)
  Sender: FDA-Public Use
  Company Number: US-BRISTOL-MYERS SQUIBB COMPANY-12585097

PATIENT
  Age: 56 Year
  Sex: Female
  Weight: 65 kg

DRUGS (2)
  1. ERBITUX [Suspect]
     Indication: COLON CANCER
     Dosage: 400 MG WEEKLY FOR 5 WEEKS REC'D ^45 ROUND^ OF CETUXIMAB
     Route: 042
  2. BENADRYL [Concomitant]
     Indication: PREMEDICATION
     Dosage: GIVEN PRIOR TO WEEKLY DOSE OF CETUXIMAB
     Route: 042

REACTIONS (2)
  - DERMATITIS ACNEIFORM [None]
  - OEDEMA PERIPHERAL [None]
